FAERS Safety Report 22653660 (Version 1)
Quarter: 2023Q2

REPORT INFORMATION
  Report Type: Report from Study
  Country: EG (occurrence: EG)
  Receive Date: 20230629
  Receipt Date: 20230629
  Transmission Date: 20230722
  Serious: Yes (Other)
  Sender: FDA-Public Use
  Company Number: EG-002147023-NVSC2023EG146803

PATIENT
  Age: 68 Year
  Sex: Female

DRUGS (8)
  1. ENTRESTO [Suspect]
     Active Substance: SACUBITRIL\VALSARTAN
     Indication: Cardiac failure
     Dosage: 100 MG, BID
     Route: 048
     Dates: start: 202106, end: 20230413
  2. ENTRESTO [Suspect]
     Active Substance: SACUBITRIL\VALSARTAN
     Dosage: 200 MG, QD
     Route: 065
  3. ENTRESTO [Suspect]
     Active Substance: SACUBITRIL\VALSARTAN
     Dosage: 100 MG, BID (THE PATIENT HAD PACKS OF ENTRESTO 200 MG SHE STARTED DIVIDING THE TABLET INTO HALVES (
     Route: 065
  4. ENTRESTO [Suspect]
     Active Substance: SACUBITRIL\VALSARTAN
     Dosage: 100 MG, BID
     Route: 065
  5. TORSEMIDE [Concomitant]
     Active Substance: TORSEMIDE
     Indication: Diuretic therapy
     Dosage: 1 DOSAGE FORM (LONG TIME AGO, EVERY 3 DAYS (3 TIMES PER WEEK))
     Route: 065
  6. BEPRA [Concomitant]
     Indication: Coagulopathy
     Dosage: 1 DOSAGE FORM, QD(LONG TIME AGO)
     Route: 065
  7. BETACOR [Concomitant]
     Indication: Heart rate irregular
     Dosage: 1 DOSAGE FORM, QD
     Route: 065
     Dates: start: 202106
  8. OSSOFORTIN [Concomitant]
     Indication: Vitamin D deficiency
     Dosage: 1 DOSAGE FORM, QD(2 YEARS AGO)
     Route: 065

REACTIONS (9)
  - Hypotension [Recovered/Resolved]
  - Somnolence [Recovered/Resolved]
  - Movement disorder [Recovered/Resolved]
  - Head discomfort [Recovered/Resolved]
  - Quality of life decreased [Recovered/Resolved]
  - Hyperhidrosis [Recovered/Resolved]
  - Abdominal discomfort [Recovered/Resolved]
  - Wrong technique in product usage process [Unknown]
  - Off label use [Unknown]

NARRATIVE: CASE EVENT DATE: 20220413
